FAERS Safety Report 6369198-2 (Version None)
Quarter: 2009Q3

REPORT INFORMATION
  Report Type: 
  Country: None (occurrence: None)
  Receive Date: 20090922
  Receipt Date: 20090914
  Transmission Date: 20100115
  Serious: Yes (Hospitalization, Other)
  Sender: FDA-Public Use
  Company Number: BR-ABBOTT-08P-020-0482604-00

PATIENT
  Sex: Female

DRUGS (2)
  1. HUMIRA [Suspect]
     Indication: RHEUMATOID ARTHRITIS
     Dosage: ONE APPLICATION EVERY 14 DAYS
     Route: 058
     Dates: start: 20080314, end: 20080805
  2. UNKNOWN CORTICOID [Concomitant]
     Indication: RHEUMATOID ARTHRITIS

REACTIONS (9)
  - HEPATITIS [None]
  - IMMUNE SYSTEM DISORDER [None]
  - INFECTION [None]
  - LARYNGITIS [None]
  - LIVER DISORDER [None]
  - RENAL DISORDER [None]
  - SKIN EXFOLIATION [None]
  - TUBERCULOSIS [None]
  - URINARY TRACT INFECTION [None]
